FAERS Safety Report 9298431 (Version 1)
Quarter: 2013Q2

REPORT INFORMATION
  Report Type: Spontaneous
  Country: US (occurrence: US)
  Receive Date: 20130520
  Receipt Date: 20130520
  Transmission Date: 20140414
  Serious: No
  Sender: FDA-Public Use
  Company Number: US-PFIZER INC-2013154015

PATIENT
  Sex: Female

DRUGS (1)
  1. XELJANZ [Suspect]
     Dosage: UNK, 2X/DAY
     Dates: start: 201304

REACTIONS (2)
  - Confusional state [Recovering/Resolving]
  - Fatigue [Recovering/Resolving]
